FAERS Safety Report 21216592 (Version 1)
Quarter: 2022Q3

REPORT INFORMATION
  Report Type: Report from Study
  Country: IL (occurrence: IL)
  Receive Date: 20220816
  Receipt Date: 20220816
  Transmission Date: 20221027
  Serious: Yes (Other)
  Sender: FDA-Public Use
  Company Number: IL-ABBVIE-22K-082-4499524-00

PATIENT
  Age: 78 Year
  Sex: Female

DRUGS (31)
  1. VENETOCLAX [Suspect]
     Active Substance: VENETOCLAX
     Indication: Acute myeloid leukaemia
     Dosage: RAMP UP
     Route: 048
     Dates: start: 20210212, end: 20210212
  2. VENETOCLAX [Suspect]
     Active Substance: VENETOCLAX
     Dosage: RAMP UP
     Route: 048
     Dates: start: 20210213, end: 20210213
  3. VENETOCLAX [Suspect]
     Active Substance: VENETOCLAX
     Dosage: INTERRUPTION COUNT RECOVERY
     Route: 048
     Dates: start: 20210214, end: 20210425
  4. VENETOCLAX [Suspect]
     Active Substance: VENETOCLAX
     Dosage: INTERRUPTION COUNT RECOVERY
     Route: 048
     Dates: start: 20210606, end: 20210801
  5. VENETOCLAX [Suspect]
     Active Substance: VENETOCLAX
     Dosage: INTERRUPTION COUNT RECOVERY
     Route: 048
     Dates: start: 20210830, end: 20210923
  6. VENETOCLAX [Suspect]
     Active Substance: VENETOCLAX
     Dosage: INTERRUPTION COUNT RECOVERY
     Route: 048
     Dates: start: 20211014, end: 20220525
  7. VENETOCLAX [Suspect]
     Active Substance: VENETOCLAX
     Route: 048
     Dates: start: 20220612
  8. AZACITIDINE [Suspect]
     Active Substance: AZACITIDINE
     Indication: Acute myeloid leukaemia
     Route: 058
     Dates: start: 20210212, end: 20210218
  9. AZACITIDINE [Suspect]
     Active Substance: AZACITIDINE
     Route: 058
     Dates: start: 20210329, end: 20210401
  10. AZACITIDINE [Suspect]
     Active Substance: AZACITIDINE
     Route: 058
     Dates: start: 20210404, end: 20210406
  11. AZACITIDINE [Suspect]
     Active Substance: AZACITIDINE
     Route: 058
     Dates: start: 20210606, end: 20210610
  12. AZACITIDINE [Suspect]
     Active Substance: AZACITIDINE
     Route: 058
     Dates: start: 20210704, end: 20210708
  13. AZACITIDINE [Suspect]
     Active Substance: AZACITIDINE
     Route: 058
     Dates: start: 20210926, end: 20210930
  14. AZACITIDINE [Suspect]
     Active Substance: AZACITIDINE
     Route: 058
     Dates: start: 20211003, end: 20211004
  15. AZACITIDINE [Suspect]
     Active Substance: AZACITIDINE
     Route: 058
     Dates: start: 20211024, end: 20211028
  16. AZACITIDINE [Suspect]
     Active Substance: AZACITIDINE
     Route: 058
     Dates: start: 20211128, end: 20211201
  17. AZACITIDINE [Suspect]
     Active Substance: AZACITIDINE
     Route: 058
     Dates: start: 20211226, end: 20211230
  18. AZACITIDINE [Suspect]
     Active Substance: AZACITIDINE
     Route: 058
     Dates: start: 20220123, end: 20220127
  19. AZACITIDINE [Suspect]
     Active Substance: AZACITIDINE
     Route: 058
     Dates: start: 20220220, end: 20220224
  20. AZACITIDINE [Suspect]
     Active Substance: AZACITIDINE
     Route: 058
     Dates: start: 20220327, end: 20220331
  21. AZACITIDINE [Suspect]
     Active Substance: AZACITIDINE
     Route: 058
     Dates: start: 20220508, end: 20220512
  22. AZACITIDINE [Suspect]
     Active Substance: AZACITIDINE
     Route: 058
     Dates: start: 20220612, end: 20220616
  23. AZACITIDINE [Suspect]
     Active Substance: AZACITIDINE
     Route: 058
     Dates: start: 20220710, end: 20220714
  24. PFIZER-BIONTECH COVID-19 VACCINE [Concomitant]
     Active Substance: TOZINAMERAN
     Indication: COVID-19 immunisation
     Dosage: FIRST INJECTION
     Route: 030
     Dates: start: 20201225, end: 20201225
  25. PFIZER-BIONTECH COVID-19 VACCINE [Concomitant]
     Active Substance: TOZINAMERAN
     Dosage: SECOND INJECTION
     Route: 030
     Dates: start: 20210118, end: 20210118
  26. ALLOPURINOL [Concomitant]
     Active Substance: ALLOPURINOL
     Indication: Prophylaxis
     Route: 048
     Dates: start: 20210211, end: 20210220
  27. SETRON [Concomitant]
     Indication: Vomiting
     Dates: start: 20210331
  28. SETRON [Concomitant]
     Indication: Nausea
  29. PIPERACILLIN SODIUM\TAZOBACTAM SODIUM [Concomitant]
     Active Substance: PIPERACILLIN SODIUM\TAZOBACTAM SODIUM
     Indication: Pulmonary congestion
     Route: 042
     Dates: start: 20210215, end: 20210225
  30. OMEPRAZOLE [Concomitant]
     Active Substance: OMEPRAZOLE
     Indication: Gastrooesophageal reflux prophylaxis
     Dates: start: 20211224
  31. OMEPRAZOLE [Concomitant]
     Active Substance: OMEPRAZOLE
     Indication: Dyspepsia

REACTIONS (17)
  - Pancytopenia [Recovering/Resolving]
  - Febrile neutropenia [Recovered/Resolved]
  - Pulmonary congestion [Recovered/Resolved]
  - Hypokalaemia [Recovered/Resolved]
  - Hypomagnesaemia [Recovered/Resolved]
  - Insomnia [Recovering/Resolving]
  - Injection site pain [Recovering/Resolving]
  - Oxygen saturation decreased [Recovered/Resolved]
  - Fatigue [Recovering/Resolving]
  - Constipation [Recovering/Resolving]
  - Back pain [Recovering/Resolving]
  - Haemorrhoidal haemorrhage [Recovering/Resolving]
  - Asthenia [Recovering/Resolving]
  - Dizziness [Recovering/Resolving]
  - Vomiting [Recovered/Resolved]
  - Pyrexia [Recovered/Resolved]
  - Arthralgia [Recovering/Resolving]

NARRATIVE: CASE EVENT DATE: 20210215
